FAERS Safety Report 8142733-X (Version None)
Quarter: 2012Q1

REPORT INFORMATION
  Report Type: 
  Country: None (occurrence: None)
  Receive Date: 20120216
  Receipt Date: 20120206
  Transmission Date: 20120608
  Serious: Yes (Hospitalization)
  Sender: FDA-Public Use
  Company Number: TW-ABBOTT-12P-153-0905001-00

PATIENT
  Age: 59 Year
  Sex: Male
  Weight: 48 kg

DRUGS (52)
  1. ACETAMINOPHEN [Concomitant]
     Indication: PRODUCT USED FOR UNKNOWN INDICATION
     Dosage: 1 TAB Q6H PRN
     Dates: start: 20120205, end: 20120208
  2. CIMEWELL [Concomitant]
     Indication: PRODUCT USED FOR UNKNOWN INDICATION
     Dosage: STAT
     Route: 048
     Dates: start: 20120205, end: 20120205
  3. PREDNISOLONE [Concomitant]
     Route: 048
     Dates: start: 20120203, end: 20120203
  4. SILYMARIN [Concomitant]
     Indication: PRODUCT USED FOR UNKNOWN INDICATION
     Route: 048
     Dates: start: 20120202, end: 20120212
  5. UNASYN [Concomitant]
     Indication: PRODUCT USED FOR UNKNOWN INDICATION
     Route: 042
     Dates: start: 20120130, end: 20120131
  6. 15% KCL INJ [Concomitant]
     Indication: PRODUCT USED FOR UNKNOWN INDICATION
     Route: 042
     Dates: start: 20120205, end: 20120208
  7. CLARITHROMYCIN [Concomitant]
     Indication: PRODUCT USED FOR UNKNOWN INDICATION
     Route: 048
     Dates: start: 20120205, end: 20120206
  8. PIPERACILLIN AND TAZOBACTAM [Concomitant]
     Indication: PRODUCT USED FOR UNKNOWN INDICATION
     Route: 042
     Dates: start: 20120203, end: 20120206
  9. HALF SALINE 500CC [Concomitant]
     Route: 042
     Dates: start: 20120130, end: 20120201
  10. 15% KCL INJ [Concomitant]
     Route: 042
     Dates: start: 20120205, end: 20120205
  11. EVAC ENEMA [Concomitant]
     Indication: PRODUCT USED FOR UNKNOWN INDICATION
     Dosage: STAT
     Route: 054
     Dates: start: 20120205, end: 20120205
  12. PREDNISOLONE [Concomitant]
     Route: 048
     Dates: start: 20120202, end: 20120203
  13. PRIMPERAN TAB [Concomitant]
     Indication: PRODUCT USED FOR UNKNOWN INDICATION
     Dosage: STAT
     Route: 042
     Dates: start: 20120204, end: 20120204
  14. ERYMYCIN [Concomitant]
     Indication: PRODUCT USED FOR UNKNOWN INDICATION
     Route: 048
     Dates: start: 20120203, end: 20120205
  15. OMELON [Concomitant]
     Indication: PRODUCT USED FOR UNKNOWN INDICATION
     Dosage: QDAC
     Route: 048
     Dates: start: 20120201, end: 20120211
  16. ACETYLCYSTEINE [Concomitant]
     Indication: PRODUCT USED FOR UNKNOWN INDICATION
     Route: 048
     Dates: start: 20120201, end: 20120211
  17. HALF SALINE 500CC [Concomitant]
     Route: 042
     Dates: start: 20120130, end: 20120130
  18. SOLU-CORTEF [Concomitant]
     Route: 042
     Dates: start: 20120130, end: 20120201
  19. UDV COMBIVENT [Concomitant]
     Indication: PRODUCT USED FOR UNKNOWN INDICATION
     Route: 055
     Dates: start: 20120130
  20. LACTUL [Concomitant]
     Indication: PRODUCT USED FOR UNKNOWN INDICATION
     Route: 048
     Dates: start: 20120130, end: 20120130
  21. MEPERIDINE HCL [Concomitant]
     Indication: PRODUCT USED FOR UNKNOWN INDICATION
     Dosage: 12.5 MG Q6H PRN
     Route: 042
     Dates: start: 20120205, end: 20120210
  22. FUROSEMIDE [Concomitant]
     Indication: PRODUCT USED FOR UNKNOWN INDICATION
     Dosage: STAT
     Route: 042
     Dates: start: 20120203, end: 20120204
  23. TUBERSOL [Concomitant]
     Indication: PRODUCT USED FOR UNKNOWN INDICATION
     Dosage: STAT
     Dates: start: 20120203, end: 20120203
  24. HALF SALINE 500CC [Concomitant]
     Indication: PRODUCT USED FOR UNKNOWN INDICATION
     Route: 042
     Dates: start: 20120201, end: 20120211
  25. TAPIMYCIN [Concomitant]
     Indication: PRODUCT USED FOR UNKNOWN INDICATION
     Route: 042
     Dates: start: 20120201, end: 20120201
  26. FOLIC ACID [Concomitant]
     Indication: PRODUCT USED FOR UNKNOWN INDICATION
     Route: 048
     Dates: start: 20120130, end: 20120209
  27. METHOTREXATE [Concomitant]
     Indication: PRODUCT USED FOR UNKNOWN INDICATION
     Route: 048
     Dates: start: 20120130, end: 20120131
  28. CIMEWELL [Concomitant]
     Route: 048
     Dates: start: 20120130, end: 20120201
  29. ULTRACET [Concomitant]
     Indication: PRODUCT USED FOR UNKNOWN INDICATION
     Route: 048
     Dates: start: 20120202, end: 20120205
  30. VALSARTAN [Concomitant]
     Indication: PRODUCT USED FOR UNKNOWN INDICATION
     Route: 048
     Dates: start: 20120130, end: 20120205
  31. ARAVA [Concomitant]
     Indication: PRODUCT USED FOR UNKNOWN INDICATION
     Route: 048
     Dates: start: 20120130, end: 20120201
  32. ALLEGRA [Concomitant]
     Indication: PRODUCT USED FOR UNKNOWN INDICATION
     Route: 048
     Dates: start: 20120204, end: 20120214
  33. PREDNISOLONE [Concomitant]
     Route: 048
     Dates: start: 20120130, end: 20120130
  34. FUROSEMIDE [Concomitant]
     Route: 048
     Dates: start: 20120201, end: 20120201
  35. ISMO [Concomitant]
     Indication: PRODUCT USED FOR UNKNOWN INDICATION
     Route: 048
     Dates: start: 20120202, end: 20120203
  36. FUSIDIC ACID [Concomitant]
     Indication: PRODUCT USED FOR UNKNOWN INDICATION
     Route: 061
     Dates: start: 20120201, end: 20120211
  37. AUGMENTIN '125' [Concomitant]
     Indication: PRODUCT USED FOR UNKNOWN INDICATION
     Route: 042
     Dates: start: 20120201, end: 20120203
  38. XANTHIUM [Concomitant]
     Indication: PRODUCT USED FOR UNKNOWN INDICATION
     Route: 048
     Dates: start: 20120130, end: 20120209
  39. DESLORATADINE [Concomitant]
     Indication: PRODUCT USED FOR UNKNOWN INDICATION
     Route: 048
     Dates: start: 20120130, end: 20120201
  40. PREDNISOLONE [Concomitant]
     Indication: PRODUCT USED FOR UNKNOWN INDICATION
     Route: 048
     Dates: start: 20120204
  41. SILYMARIN [Concomitant]
     Route: 048
     Dates: start: 20120130, end: 20120202
  42. ULTRACET [Concomitant]
     Route: 048
     Dates: start: 20120130, end: 20120202
  43. AUGMENTIN '125' [Concomitant]
     Route: 042
     Dates: start: 20120131, end: 20120201
  44. KALIMATE [Concomitant]
     Indication: PRODUCT USED FOR UNKNOWN INDICATION
     Route: 048
     Dates: start: 20120130, end: 20120130
  45. BENZONATATE [Concomitant]
     Indication: PRODUCT USED FOR UNKNOWN INDICATION
     Dosage: 1 CAP BID AND QHS
     Route: 048
     Dates: start: 20120130, end: 20120131
  46. HUMIRA [Suspect]
     Indication: RHEUMATOID ARTHRITIS
     Dates: start: 20090601, end: 20110606
  47. ACETAMINOPHEN [Concomitant]
     Dosage: 1 TAB Q6H PRN
     Route: 048
     Dates: start: 20120202, end: 20120205
  48. PREDNISOLONE [Concomitant]
     Route: 048
     Dates: start: 20120203, end: 20120204
  49. FUROSEMIDE [Concomitant]
     Route: 042
     Dates: start: 20120201, end: 20120202
  50. HALF SALINE 500CC [Concomitant]
     Dosage: STAT
     Route: 042
     Dates: start: 20120130, end: 20120130
  51. SOLU-CORTEF [Concomitant]
     Indication: PRODUCT USED FOR UNKNOWN INDICATION
     Route: 042
     Dates: start: 20120201, end: 20120203
  52. OMELON [Concomitant]
     Dosage: 20 MG QN
     Route: 048
     Dates: start: 20120130, end: 20120201

REACTIONS (4)
  - PULMONARY OEDEMA [None]
  - PNEUMONIA [None]
  - PULMONARY MASS [None]
  - LUNG INFILTRATION [None]
